FAERS Safety Report 8574434-8 (Version None)
Quarter: 2012Q3

REPORT INFORMATION
  Report Type: 
  Country: None (occurrence: None)
  Receive Date: 20120806
  Receipt Date: 20120731
  Transmission Date: 20120928
  Serious: Yes (Hospitalization)
  Sender: FDA-Public Use
  Company Number: FR-ROCHE-1095679

PATIENT
  Age: 76 Year
  Sex: Male

DRUGS (10)
  1. MABTHERA [Suspect]
     Indication: CHRONIC LYMPHOCYTIC LEUKAEMIA
     Route: 042
     Dates: start: 20110920, end: 20110920
  2. FLUDARABINE PHOSPHATE [Suspect]
     Indication: CHRONIC LYMPHOCYTIC LEUKAEMIA
     Route: 042
     Dates: start: 20110920, end: 20110922
  3. PIPERACILLIN [Concomitant]
  4. FILGRASTIM [Concomitant]
  5. CYCLOPHOSPHAMIDE [Suspect]
     Indication: CHRONIC LYMPHOCYTIC LEUKAEMIA
     Route: 042
     Dates: start: 20110920, end: 20110922
  6. VALACICLOVIR [Concomitant]
     Indication: INFECTION PROPHYLAXIS
     Route: 048
  7. TAZOBACTAM [Concomitant]
  8. BACTRIM DS [Concomitant]
     Indication: INFECTION PROPHYLAXIS
     Route: 048
     Dates: end: 20111019
  9. CEFUROXIME [Concomitant]
  10. CIPROFLOXACIN [Concomitant]

REACTIONS (2)
  - HYPERTHERMIA [None]
  - PANCYTOPENIA [None]
